FAERS Safety Report 20668131 (Version 1)
Quarter: 2022Q2

REPORT INFORMATION
  Report Type: Report from Study
  Country: BE (occurrence: BE)
  Receive Date: 20220404
  Receipt Date: 20220404
  Transmission Date: 20220721
  Serious: Yes (Other)
  Sender: FDA-Public Use
  Company Number: BE-JNJFOC-20220351123

PATIENT

DRUGS (5)
  1. BORTEZOMIB [Suspect]
     Active Substance: BORTEZOMIB
     Indication: Plasma cell myeloma
     Dosage: 1.3 MILLIGRAM/SQ. METER, 1/WEEK
     Route: 065
  2. DEXAMETHASONE [Suspect]
     Active Substance: DEXAMETHASONE
     Indication: Plasma cell myeloma
     Dosage: UNK UNK, 1/WEEK
     Route: 065
  3. SELINEXOR [Suspect]
     Active Substance: SELINEXOR
     Indication: Plasma cell myeloma
     Dosage: 100 MILLIGRAM, 1/WEEK
     Route: 065
  4. SELINEXOR [Suspect]
     Active Substance: SELINEXOR
     Dosage: 40 MILLIGRAM, 1/WEEK
     Route: 065
  5. SELINEXOR [Suspect]
     Active Substance: SELINEXOR
     Dosage: 80 MILLIGRAM, 1/WEEK
     Route: 065

REACTIONS (1)
  - Interstitial lung disease [Unknown]
